FAERS Safety Report 7097496-6 (Version None)
Quarter: 2010Q4

REPORT INFORMATION
  Report Type: 
  Country: None (occurrence: None)
  Receive Date: 20101111
  Receipt Date: 20101026
  Transmission Date: 20110411
  Serious: Yes (Hospitalization, Other)
  Sender: FDA-Public Use
  Company Number: PHHY2010FR73027

PATIENT
  Age: 70 Year
  Sex: Female

DRUGS (4)
  1. EXFORGE [Suspect]
     Dosage: 160/5 MG
     Route: 048
     Dates: start: 20100410, end: 20100412
  2. TAREG [Suspect]
     Dosage: UNK
     Dates: start: 20100412, end: 20100420
  3. KESTINE [Concomitant]
     Dosage: 10 MG
     Route: 048
     Dates: start: 20100412
  4. ATARAX [Concomitant]
     Dosage: UNK
     Route: 048
     Dates: start: 20100412

REACTIONS (5)
  - FACE OEDEMA [None]
  - PHOTOSENSITIVITY REACTION [None]
  - RASH [None]
  - TONGUE OEDEMA [None]
  - TRYPTASE INCREASED [None]
